FAERS Safety Report 4873437-4 (Version None)
Quarter: 2006Q1

REPORT INFORMATION
  Report Type: 
  Country: None (occurrence: None)
  Receive Date: 20060105
  Receipt Date: 20051214
  Transmission Date: 20060701
  Serious: Yes (Hospitalization)
  Sender: FDA-Public Use
  Company Number: FR-ABBOTT-05P-056-0319994-00

PATIENT
  Age: 43 Year
  Sex: Male

DRUGS (5)
  1. NORVIR [Suspect]
     Indication: HIV INFECTION
     Route: 048
     Dates: start: 20050227, end: 20050321
  2. NORVIR [Suspect]
     Route: 048
     Dates: start: 20040901, end: 20041201
  3. ATAZANAVIR [Suspect]
     Indication: HIV INFECTION
     Dates: start: 20050227, end: 20050321
  4. ATAZANAVIR [Suspect]
     Dates: start: 20040901, end: 20041201
  5. EFAVIRENZ [Concomitant]
     Indication: HIV INFECTION
     Route: 048
     Dates: start: 20040901, end: 20041201

REACTIONS (8)
  - ASTHENIA [None]
  - COUGH [None]
  - HAEMOLYTIC ANAEMIA [None]
  - HEPATOSPLENOMEGALY [None]
  - INSOMNIA [None]
  - LYMPHADENOPATHY [None]
  - MUSCULOSKELETAL STIFFNESS [None]
  - OCULAR ICTERUS [None]
